FAERS Safety Report 8406293-8 (Version None)
Quarter: 2012Q2

REPORT INFORMATION
  Report Type: 
  Country: None (occurrence: None)
  Receive Date: 20120604
  Receipt Date: 20120528
  Transmission Date: 20120825
  Serious: Yes (Death)
  Sender: FDA-Public Use
  Company Number: PHHY2012MX035169

PATIENT
  Sex: Male

DRUGS (1)
  1. EXELON [Suspect]
     Indication: DEMENTIA ALZHEIMER'S TYPE
     Dosage: 4.6MG/ 24HRS
     Route: 062
     Dates: start: 20120328

REACTIONS (3)
  - RESPIRATORY ARREST [None]
  - HYPERTHYROIDISM [None]
  - MALNUTRITION [None]
